FAERS Safety Report 22526390 (Version 2)
Quarter: 2023Q4

REPORT INFORMATION
  Report Type: Spontaneous
  Country: CL (occurrence: CL)
  Receive Date: 20230606
  Receipt Date: 20231123
  Transmission Date: 20240110
  Serious: Yes (Other)
  Sender: FDA-Public Use
  Company Number: CL-JNJFOC-20230606471

PATIENT
  Age: 63 Year

DRUGS (9)
  1. DARZALEX [Suspect]
     Active Substance: DARATUMUMAB
     Indication: Plasma cell myeloma
     Route: 065
  2. DARZALEX [Suspect]
     Active Substance: DARATUMUMAB
     Indication: Cardiac amyloidosis
  3. DARZALEX [Suspect]
     Active Substance: DARATUMUMAB
     Indication: Renal amyloidosis
  4. BORTEZOMIB [Suspect]
     Active Substance: BORTEZOMIB
     Indication: Plasma cell myeloma
     Route: 065
  5. BORTEZOMIB [Suspect]
     Active Substance: BORTEZOMIB
     Indication: Cardiac amyloidosis
  6. BORTEZOMIB [Suspect]
     Active Substance: BORTEZOMIB
     Indication: Renal amyloidosis
  7. DEXAMETHASONE [Suspect]
     Active Substance: DEXAMETHASONE
     Indication: Plasma cell myeloma
     Route: 065
  8. DEXAMETHASONE [Suspect]
     Active Substance: DEXAMETHASONE
     Indication: Cardiac amyloidosis
  9. DEXAMETHASONE [Suspect]
     Active Substance: DEXAMETHASONE
     Indication: Renal amyloidosis

REACTIONS (3)
  - Respiratory distress [Unknown]
  - Erythema [Unknown]
  - Diastolic hypotension [Unknown]
